FAERS Safety Report 7735667-3 (Version None)
Quarter: 2011Q3

REPORT INFORMATION
  Report Type: 
  Country: None (occurrence: None)
  Receive Date: 20110907
  Receipt Date: 20110825
  Transmission Date: 20111222
  Serious: Yes (Hospitalization, Other)
  Sender: FDA-Public Use
  Company Number: US-CELGENEUS-163-21880-11070171

PATIENT
  Sex: Male

DRUGS (15)
  1. PRAVASTATIN SODIUM [Concomitant]
     Dosage: 20 MILLIGRAM
     Route: 048
  2. FINASTERIDE [Concomitant]
     Dosage: 5 MILLIGRAM
     Route: 048
  3. REVLIMID [Suspect]
     Dosage: 10 MILLIGRAM
     Route: 048
     Dates: start: 20110603, end: 20110629
  4. VITAMIN D [Concomitant]
     Dosage: 400 UNITS
     Route: 048
  5. SINEMET CR [Concomitant]
     Indication: PARKINSON'S DISEASE
     Dosage: 50/200
     Route: 048
  6. PREVACID [Concomitant]
     Dosage: 15 MILLIGRAM
     Route: 048
  7. REVLIMID [Suspect]
     Dosage: 10 MILLIGRAM
     Route: 048
     Dates: start: 20110711
  8. ASPIRIN [Concomitant]
     Route: 065
  9. SINEMET [Concomitant]
     Indication: PARKINSON'S DISEASE
     Dosage: 25-100MG
     Route: 048
  10. POLYETHYLENE GLYCOL [Concomitant]
     Dosage: 17 GRAM
     Route: 048
  11. BISACODYL [Concomitant]
     Dosage: 5 MILLIGRAM
     Route: 048
  12. QUETIAPINE [Concomitant]
     Dosage: 25 MILLIGRAM
     Route: 048
  13. DOCUSATE SODIUM [Concomitant]
     Dosage: 100 MILLIGRAM
     Route: 048
  14. LODOSYN [Concomitant]
     Indication: PARKINSON'S DISEASE
     Dosage: 25 MILLIGRAM
     Route: 048
  15. SEROQUEL [Concomitant]
     Indication: PARKINSON'S DISEASE
     Route: 065

REACTIONS (3)
  - HAEMOGLOBIN DECREASED [None]
  - CONSTIPATION [None]
  - MENTAL STATUS CHANGES [None]
